FAERS Safety Report 9851346 (Version 3)
Quarter: 2014Q2

REPORT INFORMATION
  Report Type: Spontaneous
  Country: AU (occurrence: AU)
  Receive Date: 20140129
  Receipt Date: 20140408
  Transmission Date: 20141212
  Serious: Yes (Other)
  Sender: FDA-Public Use
  Company Number: AU-AMGEN-AUSSP2014005110

PATIENT
  Age: 80 Year
  Sex: Female
  Weight: 47 kg

DRUGS (5)
  1. PROLIA [Suspect]
     Indication: OSTEOPOROSIS
     Dosage: 60 MG, Q6MO
     Route: 065
     Dates: start: 20120726
  2. METFORMIN [Concomitant]
     Indication: DIABETES MELLITUS
     Dosage: 500 UNK, QD
     Route: 048
     Dates: start: 2010
  3. LYRICA [Concomitant]
     Indication: PAIN
     Dosage: 25 MG, QD
  4. AZIMYCIN [Concomitant]
     Dosage: 75 UNK, QD
     Route: 048
  5. VENTOLIN                           /00139501/ [Concomitant]
     Dosage: INHALER, AS NECESSARY
     Route: 065

REACTIONS (7)
  - Synovial cyst [Not Recovered/Not Resolved]
  - Finger deformity [Unknown]
  - Joint range of motion decreased [Unknown]
  - Osteoarthritis [Not Recovered/Not Resolved]
  - Asthenia [Unknown]
  - Pain in extremity [Unknown]
  - Erythema [Unknown]
